FAERS Safety Report 10688066 (Version 1)
Quarter: 2014Q4

REPORT INFORMATION
  Report Type: Spontaneous
  Country: FR (occurrence: None)
  Receive Date: 20141231
  Receipt Date: 20141231
  Transmission Date: 20150529
  Serious: Yes (Hospitalization)
  Sender: FDA-Public Use
  Company Number: JPI-P-000666

PATIENT
  Age: 66 Year
  Sex: Female
  Weight: 58 kg

DRUGS (6)
  1. XYREM [Suspect]
     Active Substance: SODIUM OXYBATE
     Indication: NARCOLEPSY
     Dosage: 2.25 G TO 4.50 G AS SECOND DOSE FREQUENTLY FORGOT, ORAL
     Dates: start: 20070107, end: 20070123
  2. ALCOVER (OXYBATE SODIUM) [Concomitant]
     Active Substance: SODIUM OXYBATE
  3. MODAFINIL. [Concomitant]
     Active Substance: MODAFINIL
  4. ANTIHYPERTENSIVE (ANTIHYPERTENSIVES) [Concomitant]
  5. XYREM [Suspect]
     Active Substance: SODIUM OXYBATE
     Indication: CATAPLEXY
     Dosage: 2.25 G TO 4.50 G AS SECOND DOSE FREQUENTLY FORGOT, ORAL
     Dates: start: 20070107, end: 20070123
  6. XYREM [Suspect]
     Active Substance: SODIUM OXYBATE
     Indication: HYPNAGOGIC HALLUCINATION
     Dosage: 2.25 G TO 4.50 G AS SECOND DOSE FREQUENTLY FORGOT, ORAL
     Dates: start: 20070107, end: 20070123

REACTIONS (25)
  - Abdominal pain [None]
  - Gastrooesophageal reflux disease [None]
  - Vertigo [None]
  - Amnesia [None]
  - Somnolence [None]
  - Fall [None]
  - Bronchitis [None]
  - Menometrorrhagia [None]
  - Decreased appetite [None]
  - Pain in extremity [None]
  - Muscle spasms [None]
  - Nausea [None]
  - Agitation [None]
  - Disorientation [None]
  - Nightmare [None]
  - Incontinence [None]
  - Fatigue [None]
  - Vaginal prolapse [None]
  - Hypokalaemia [None]
  - Insomnia [None]
  - Drug dose omission [None]
  - Cataplexy [None]
  - Psychomotor hyperactivity [None]
  - Headache [None]
  - Diarrhoea [None]

NARRATIVE: CASE EVENT DATE: 20070107
